FAERS Safety Report 6000504-4 (Version None)
Quarter: 2008Q4

REPORT INFORMATION
  Report Type: 
  Country: None (occurrence: None)
  Receive Date: 20081215
  Receipt Date: 20080422
  Transmission Date: 20090506
  Serious: No
  Sender: FDA-Public Use
  Company Number: US-BAYER-200811919BCC

PATIENT
  Age: 26 Year
  Weight: 64 kg

DRUGS (2)
  1. NAPROXEN SODIUM [Suspect]
     Indication: DRUG USE FOR UNKNOWN INDICATION
  2. SUDAFED S.A. [Suspect]
     Indication: NASAL CONGESTION
     Route: 048
     Dates: start: 20080326, end: 20080326

REACTIONS (1)
  - FEELING JITTERY [None]
